FAERS Safety Report 4545476-4 (Version None)
Quarter: 2005Q1

REPORT INFORMATION
  Report Type: 
  Country: None (occurrence: None)
  Receive Date: 20050105
  Receipt Date: 20041220
  Transmission Date: 20050727
  Serious: Yes (Hospitalization)
  Sender: FDA-Public Use
  Company Number: SG-MERCK-0412SGP00005

PATIENT
  Age: 56 Year
  Sex: Male

DRUGS (5)
  1. EMEND [Suspect]
     Route: 048
     Dates: start: 20041110, end: 20041113
  2. CISPLATIN [Concomitant]
     Indication: NASOPHARYNGEAL CANCER
     Route: 065
     Dates: start: 20041110, end: 20041113
  3. GRANISETRON HYDROCHLORIDE [Concomitant]
     Route: 065
     Dates: start: 20041110, end: 20041113
  4. METOCLOPRAMIDE HYDROCHLORIDE [Concomitant]
     Route: 065
     Dates: start: 20041113
  5. AMILORIDE [Concomitant]
     Indication: HYPERTENSION
     Route: 048

REACTIONS (2)
  - INAPPROPRIATE ANTIDIURETIC HORMONE SECRETION [None]
  - LACUNAR INFARCTION [None]
